FAERS Safety Report 5522862-7 (Version None)
Quarter: 2007Q4

REPORT INFORMATION
  Report Type: 
  Country: None (occurrence: None)
  Receive Date: 20071115
  Receipt Date: 20071101
  Transmission Date: 20080405
  Serious: Yes (Other)
  Sender: FDA-Public Use
  Company Number: 163668ISR

PATIENT
  Age: 10 Year
  Sex: Female

DRUGS (1)
  1. LACTULOSE [Suspect]
     Dosage: (10 ML)
     Dates: start: 20000101

REACTIONS (2)
  - DENTAL CARIES [None]
  - INCORRECT ROUTE OF DRUG ADMINISTRATION [None]
